FAERS Safety Report 6999707-1 (Version None)
Quarter: 2010Q3

REPORT INFORMATION
  Report Type: 
  Country: None (occurrence: None)
  Receive Date: 20100920
  Receipt Date: 20100205
  Transmission Date: 20110219
  Serious: Yes (Other)
  Sender: FDA-Public Use
  Company Number: US-ASTRAZENECA-2010SE02370

PATIENT
  Age: 35 Year
  Sex: Male
  Weight: 124.7 kg

DRUGS (13)
  1. SEROQUEL [Suspect]
     Indication: BIPOLAR DISORDER
     Route: 048
     Dates: start: 20040901, end: 20050101
  2. SEROQUEL [Suspect]
     Route: 048
     Dates: end: 20061101
  3. DEPAKOTE [Concomitant]
     Dates: start: 20030101, end: 20040101
  4. MIRTAZAPINE [Concomitant]
     Dates: start: 20040101, end: 20090101
  5. GABITRIL [Concomitant]
  6. TRILEPTOL [Concomitant]
     Dates: start: 20030101, end: 20040101
  7. PAXIL CR [Concomitant]
     Dosage: ONE DAILY
     Dates: start: 20030101, end: 20040101
  8. FLUOXETINE [Concomitant]
     Dates: start: 20040101, end: 20090101
  9. TOPAMAX [Concomitant]
     Dosage: 25 MG, 2 TABLETS, 3 TIMES  DAILY
  10. TEMAZEPAM [Concomitant]
  11. KLONOPIN [Concomitant]
  12. HALDOL [Concomitant]
  13. THORAZINE [Concomitant]

REACTIONS (6)
  - BLOOD TRIGLYCERIDES INCREASED [None]
  - DIABETES MELLITUS [None]
  - NERVE INJURY [None]
  - PANCREATITIS [None]
  - ROAD TRAFFIC ACCIDENT [None]
  - SUICIDAL IDEATION [None]
